FAERS Safety Report 6427219-2 (Version None)
Quarter: 2009Q4

REPORT INFORMATION
  Report Type: 
  Country: None (occurrence: None)
  Receive Date: 20091104
  Receipt Date: 20091102
  Transmission Date: 20100525
  Serious: Yes (Other)
  Sender: FDA-Public Use
  Company Number: A0790540A

PATIENT
  Sex: Female
  Weight: 70.5 kg

DRUGS (3)
  1. LAPATINIB [Suspect]
     Dosage: 1000MG PER DAY
     Route: 048
     Dates: start: 20090528
  2. DOCETAXEL [Suspect]
     Dosage: 100MGM2 CYCLIC
     Route: 042
     Dates: start: 20090528
  3. TRASTUZUMAB [Suspect]
     Dosage: 4MGK WEEKLY
     Route: 042
     Dates: start: 20090528

REACTIONS (1)
  - NEUTROPENIA [None]
